FAERS Safety Report 22356972 (Version 4)
Quarter: 2024Q2

REPORT INFORMATION
  Report Type: Spontaneous
  Country: JP (occurrence: JP)
  Receive Date: 20230523
  Receipt Date: 20240531
  Transmission Date: 20240715
  Serious: Yes (Hospitalization, Other)
  Sender: FDA-Public Use
  Company Number: JP-AMGEN-JPNSP2023083868

PATIENT
  Age: 41 Year
  Sex: Male

DRUGS (2)
  1. OTEZLA [Suspect]
     Active Substance: APREMILAST
     Indication: Psoriatic arthropathy
     Dosage: 30 MILLIGRAM, BID
     Route: 048
  2. CELECOXIB [Concomitant]
     Active Substance: CELECOXIB
     Dosage: UNK

REACTIONS (4)
  - Cytokine storm [Unknown]
  - Lymphocyte count decreased [Unknown]
  - Psoriatic arthropathy [Unknown]
  - Psoriasis [Unknown]

NARRATIVE: CASE EVENT DATE: 20230101
